FAERS Safety Report 9785415 (Version 1)
Quarter: 2013Q4

REPORT INFORMATION
  Report Type: Spontaneous
  Country: GB (occurrence: GB)
  Receive Date: 20131227
  Receipt Date: 20131227
  Transmission Date: 20140711
  Serious: Yes (Other)
  Sender: FDA-Public Use
  Company Number: GB-BAYER-2013-155916

PATIENT
  Age: 67 Year
  Sex: Male

DRUGS (3)
  1. CIPROFLOXACIN MONOHYDROCHLORIDE [Suspect]
     Indication: ANTIBIOTIC PROPHYLAXIS
     Dosage: UNK
  2. AMOXICILLINE [Interacting]
     Dosage: UNK
  3. METHOTREXATE [Interacting]

REACTIONS (2)
  - Rheumatoid arthritis [Recovered/Resolved]
  - Drug interaction [None]
